FAERS Safety Report 6379658-6 (Version None)
Quarter: 2009Q3

REPORT INFORMATION
  Report Type: 
  Country: None (occurrence: None)
  Receive Date: 20090923
  Receipt Date: 20090910
  Transmission Date: 20100115
  Serious: Yes (Death, Hospitalization)
  Sender: FDA-Public Use
  Company Number: 2009AL002547

PATIENT
  Age: 64 Year
  Sex: Female
  Weight: 70.3075 kg

DRUGS (35)
  1. DIGOXIN [Suspect]
     Dosage: 0.25MG , DAILY, PO
     Route: 048
     Dates: start: 20050101, end: 20090102
  2. DIGOXIN [Suspect]
     Dosage: 0.125MG, DAILY, PO
     Route: 048
     Dates: start: 20060618
  3. MONOPRIL [Concomitant]
  4. HYDROXYUREA [Concomitant]
  5. COUMADIN [Concomitant]
  6. FOSINOPRIL SODIUM [Concomitant]
  7. SPORANOX [Concomitant]
  8. FUROSEMIDE [Concomitant]
  9. GLYBURIDE [Concomitant]
  10. ASCENSIA [Concomitant]
  11. ISOSORBIDE [Concomitant]
  12. SPIRONOLACTONE [Concomitant]
  13. COREG [Concomitant]
  14. FOSAMAX [Concomitant]
  15. NITROGLYCERIN [Concomitant]
  16. SIMVASTATIN [Concomitant]
  17. CARVEDILOL [Concomitant]
  18. NEXIUM [Concomitant]
  19. FLONASE [Concomitant]
  20. CALCIUM [Concomitant]
  21. NITROGLYCERIN [Concomitant]
  22. XANAX [Concomitant]
  23. TYLENOL (CAPLET) [Concomitant]
  24. SIMETHICONE [Concomitant]
  25. PRINIVIL [Concomitant]
  26. PHENERGAN [Concomitant]
  27. IBUPROFEN [Concomitant]
  28. CHLORPHENIRAMINE MALEATE [Concomitant]
  29. ALPRAZOLAM [Concomitant]
  30. LOPERAMIDE [Concomitant]
  31. FLUTICASONE PROPIONATE [Concomitant]
  32. NOVOLIN [Concomitant]
  33. PREMARIN [Concomitant]
  34. ITRACONAZOLE [Concomitant]
  35. HYDOX-UREA [Concomitant]

REACTIONS (17)
  - ASTHENIA [None]
  - ATRIAL FIBRILLATION [None]
  - BRADYCARDIA [None]
  - CORONARY ARTERY DISEASE [None]
  - ECONOMIC PROBLEM [None]
  - FLUID OVERLOAD [None]
  - GASTROENTERITIS [None]
  - HIATUS HERNIA [None]
  - HYPERTENSION [None]
  - HYPOGLYCAEMIA [None]
  - HYPOTENSION [None]
  - INJURY [None]
  - LEFT ATRIAL DILATATION [None]
  - MITRAL VALVE STENOSIS [None]
  - PULMONARY VALVE INCOMPETENCE [None]
  - ROAD TRAFFIC ACCIDENT [None]
  - THERAPEUTIC AGENT TOXICITY [None]
